FAERS Safety Report 11306328 (Version 2)
Quarter: 2015Q4

REPORT INFORMATION
  Report Type: Report from Study
  Country: US (occurrence: US)
  Receive Date: 20150723
  Receipt Date: 20151209
  Transmission Date: 20160304
  Serious: Yes (Hospitalization, Other)
  Sender: FDA-Public Use
  Company Number: US-VIIV HEALTHCARE LIMITED-B1020599A

PATIENT
  Age: 75 Year
  Sex: Male
  Weight: 54.2 kg

DRUGS (9)
  1. MARAVIROC [Suspect]
     Active Substance: MARAVIROC
     Dosage: 300 MG, BID
     Dates: start: 20140828
  2. EMTRICITABINE/TENOFOVIR DISOPROXIL FUMARATE [Concomitant]
     Active Substance: EMTRICITABINE\TENOFOVIR DISOPROXIL
     Dosage: 1 UNK, QD
     Route: 048
  3. SILDENAFIL CITRATE. [Concomitant]
     Active Substance: SILDENAFIL CITRATE
     Dosage: 0.5 UNK, UNK
     Route: 048
  4. OXYBUTYNIN HYDROCHLORIDE [Concomitant]
     Active Substance: OXYBUTYNIN CHLORIDE
     Dosage: 5 MG, TID
     Route: 048
  5. TERAZOSIN HYDROCHLORIDE HYDRATE [Concomitant]
     Dosage: 5 MG, QD
     Route: 048
  6. MARAVIROC [Suspect]
     Active Substance: MARAVIROC
     Indication: HIV INFECTION
     Dosage: 100 MG, QD
     Route: 048
  7. DAPSONE. [Concomitant]
     Active Substance: DAPSONE
     Dosage: 100 MG, QD
     Route: 048
  8. SIMVASTATIN. [Concomitant]
     Active Substance: SIMVASTATIN
     Dosage: UNK, QD
     Route: 048
  9. FINASTERIDE. [Concomitant]
     Active Substance: FINASTERIDE
     Dosage: 5 MG, QD
     Route: 048

REACTIONS (3)
  - Oral candidiasis [Recovered/Resolved]
  - Pneumonia [Recovered/Resolved]
  - Hodgkin^s disease [Not Recovered/Not Resolved]

NARRATIVE: CASE EVENT DATE: 20140601
